FAERS Safety Report 4871411-5 (Version None)
Quarter: 2006Q1

REPORT INFORMATION
  Report Type: 
  Country: None (occurrence: None)
  Receive Date: 20060103
  Receipt Date: 20051209
  Transmission Date: 20060701
  Serious: Yes (Disabling, Other)
  Sender: FDA-Public Use
  Company Number: US-MERCK-0512USA01717

PATIENT
  Age: 56 Year
  Sex: Female
  Weight: 90 kg

DRUGS (9)
  1. TRICOR [Concomitant]
     Indication: HYPERTRIGLYCERIDAEMIA
     Route: 048
     Dates: start: 20000101
  2. VITAMIN E [Concomitant]
     Route: 065
  3. SINGULAIR [Concomitant]
     Indication: HYPERSENSITIVITY
     Route: 048
     Dates: start: 20050525
  4. FOSAMAX [Suspect]
     Indication: OSTEOPENIA
     Route: 048
     Dates: start: 20020701, end: 20051201
  5. ASPIRIN [Concomitant]
     Route: 048
     Dates: start: 19990101
  6. NEXIUM [Concomitant]
     Route: 065
  7. SYNTHROID [Concomitant]
     Indication: HYPOTHYROIDISM
     Route: 048
     Dates: start: 19990301
  8. LIPITOR [Concomitant]
     Indication: HYPERLIPIDAEMIA
     Route: 048
     Dates: start: 19990101
  9. ESTRATEST [Concomitant]
     Indication: HORMONE REPLACEMENT THERAPY
     Route: 065
     Dates: start: 20010101

REACTIONS (8)
  - BONE DISORDER [None]
  - BONE GRAFT [None]
  - DENTAL DISCOMFORT [None]
  - ORAL PAIN [None]
  - PAIN [None]
  - SKIN GRAFT [None]
  - TOOTH DISORDER [None]
  - TOOTHACHE [None]
